FAERS Safety Report 6874147-4 (Version None)
Quarter: 2010Q3

REPORT INFORMATION
  Report Type: 
  Country: None (occurrence: None)
  Receive Date: 20100723
  Receipt Date: 20090616
  Transmission Date: 20110219
  Serious: No
  Sender: FDA-Public Use
  Company Number: US-PFIZER INC-2009207204

PATIENT
  Sex: Male

DRUGS (1)
  1. CHANTIX [Suspect]
     Dates: end: 20090401

REACTIONS (4)
  - HEAD DISCOMFORT [None]
  - HYPERHIDROSIS [None]
  - MOBILITY DECREASED [None]
  - NIGHTMARE [None]
